FAERS Safety Report 25712061 (Version 2)
Quarter: 2025Q3

REPORT INFORMATION
  Report Type: Other
  Country: EU (occurrence: EU)
  Receive Date: 20250821
  Receipt Date: 20250930
  Transmission Date: 20251021
  Serious: Yes (Hospitalization, Other)
  Sender: Integrated Therapeutic Solutions
  Company Number: EU-Integrated Therapeutic Solutions Inc.-2182955

PATIENT
  Age: 48 Year
  Sex: Male

DRUGS (5)
  1. PYLERA [Suspect]
     Active Substance: BISMUTH SUBCITRATE POTASSIUM\METRONIDAZOLE\TETRACYCLINE HYDROCHLORIDE
     Indication: Helicobacter infection
     Dates: start: 20250707, end: 20250717
  2. RITUXIMAB [Suspect]
     Active Substance: RITUXIMAB
     Dates: start: 20250603, end: 20250625
  3. ENTECAVIR Compressa (ENTECAVIR) [Concomitant]
  4. ENOXAPARINA SOLUTION FOR INJECTION IN PRE-FILLED SYRINGE (Enoxaparin) [Concomitant]
  5. DEURSIL [Suspect]
     Active Substance: URSODIOL
     Dates: start: 20250608, end: 20250806

REACTIONS (1)
  - Hepatitis acute [Unknown]
